FAERS Safety Report 21348412 (Version 1)
Quarter: 2022Q3

REPORT INFORMATION
  Report Type: Other
  Country: US (occurrence: None)
  Receive Date: 20220919
  Receipt Date: 20220919
  Transmission Date: 20221026
  Serious: Yes (Death)
  Sender: FDA-Public Use
  Company Number: US-ROCHE-3151132

PATIENT
  Age: 79 Year
  Sex: Female
  Weight: 69.462 kg

DRUGS (2)
  1. RITUXAN [Suspect]
     Active Substance: RITUXIMAB
     Indication: Rheumatoid arthritis
     Dosage: 1000MG ON DAY1 AND DAY15 EVERY 4 MONTH DATE OF SERVICE: 10/21/2020, 11/04/2020, 03/25/2021, 04/07/20
     Route: 042
     Dates: start: 20201121, end: 20210910
  2. RITUXAN [Suspect]
     Active Substance: RITUXIMAB
     Dosage: DATE OF SERVICE: 08/27/2021, 09/10/2021
     Route: 042

REACTIONS (1)
  - COVID-19 pneumonia [Fatal]

NARRATIVE: CASE EVENT DATE: 20220110
